FAERS Safety Report 4833376-1 (Version None)
Quarter: 2005Q4

REPORT INFORMATION
  Report Type: 
  Country: None (occurrence: None)
  Receive Date: 20051117
  Receipt Date: 20051114
  Transmission Date: 20060501
  Serious: Yes (Hospitalization)
  Sender: FDA-Public Use
  Company Number: DEWYE137214NOV05

PATIENT
  Age: 45 Year
  Sex: Female

DRUGS (2)
  1. VENLAFAXINE HCL [Suspect]
     Route: 048
     Dates: start: 20051112, end: 20051112
  2. ZOPICLONE (ZOPICLONE, 0) [Suspect]
     Dosage: 10 TABLETS (OVERDOSE AMOUNT 75 MG)
     Route: 048
     Dates: start: 20051112, end: 20051112

REACTIONS (3)
  - MULTIPLE DRUG OVERDOSE INTENTIONAL [None]
  - SOMNOLENCE [None]
  - SUICIDE ATTEMPT [None]
